FAERS Safety Report 9354207 (Version 2)
Quarter: 2013Q3

REPORT INFORMATION
  Report Type: Spontaneous
  Country: US (occurrence: US)
  Receive Date: 20130618
  Receipt Date: 20130708
  Transmission Date: 20140515
  Serious: Yes (Life-Threatening, Hospitalization)
  Sender: FDA-Public Use
  Company Number: US-B.I. PHARMACEUTICALS,INC./RIDGEFIELD-2013-BI-17109BP

PATIENT
  Age: 88 Year
  Sex: Female

DRUGS (9)
  1. PRADAXA [Suspect]
     Indication: CARDIOVASCULAR EVENT PROPHYLAXIS
     Dosage: 300 MG
     Route: 048
  2. PRADAXA [Suspect]
     Indication: ATRIAL FIBRILLATION
     Dosage: 75 MG
     Route: 048
     Dates: start: 201209, end: 20130612
  3. ASPIRIN [Concomitant]
     Indication: ARTERIOSCLEROSIS
     Dosage: 84 NR
  4. METOPROLOL SUCCINATE [Concomitant]
     Indication: ARTERIOSCLEROSIS
     Dosage: 25 NR
  5. OMEPRAZOLE [Concomitant]
     Indication: GASTROOESOPHAGEAL REFLUX DISEASE
     Dosage: 20 NR
  6. LOSARTAN [Concomitant]
     Indication: ARTERIOSCLEROSIS
     Dosage: 50 NR
  7. PRAVASTATIN [Concomitant]
     Indication: ARTERIOSCLEROSIS
     Dosage: 40 NR
  8. METOLAZONE [Concomitant]
     Indication: CARDIAC FAILURE CONGESTIVE
     Dosage: 2.5 NR
  9. FUROSEMIDE [Concomitant]
     Indication: CARDIAC FAILURE CONGESTIVE
     Dosage: 40 NR

REACTIONS (2)
  - Gastrointestinal haemorrhage [Recovered/Resolved]
  - Gastrointestinal haemorrhage [Recovered/Resolved]
